FAERS Safety Report 6077332-7 (Version None)
Quarter: 2009Q1

REPORT INFORMATION
  Report Type: 
  Country: None (occurrence: None)
  Receive Date: 20090213
  Receipt Date: 20090206
  Transmission Date: 20090719
  Serious: Yes (Hospitalization)
  Sender: FDA-Public Use
  Company Number: B0557792A

PATIENT
  Age: 81 Year
  Sex: Female

DRUGS (4)
  1. AUGMENTIN '125' [Suspect]
     Dosage: 1G THREE TIMES PER DAY
     Route: 048
     Dates: start: 20081013, end: 20081023
  2. BRICANYL [Concomitant]
     Route: 055
     Dates: start: 20081013
  3. ATROVENT [Concomitant]
     Route: 055
     Dates: start: 20081013
  4. RESPIRATORY PHYSIOTHERAPY [Concomitant]
     Dates: start: 20081013

REACTIONS (3)
  - CLOSTRIDIUM DIFFICILE COLITIS [None]
  - FAECES DISCOLOURED [None]
  - GASTROENTERITIS [None]
